FAERS Safety Report 5420674-6 (Version None)
Quarter: 2007Q3

REPORT INFORMATION
  Report Type: 
  Country: None (occurrence: None)
  Receive Date: 20070821
  Receipt Date: 20070815
  Transmission Date: 20080115
  Serious: Yes (Death)
  Sender: FDA-Public Use
  Company Number: VE-ABBOTT-07P-178-0377939-00

PATIENT
  Sex: Male
  Weight: 72 kg

DRUGS (9)
  1. ZEMPLAR [Suspect]
     Indication: HYPERPARATHYROIDISM SECONDARY
     Route: 042
     Dates: start: 20070727, end: 20070808
  2. EPOGEN [Concomitant]
     Indication: ANAEMIA
     Route: 058
  3. ENALAPRIL MALEATE [Concomitant]
     Indication: HYPERTENSION
     Route: 048
  4. FOLIC ACID [Concomitant]
     Indication: VITAMIN SUPPLEMENTATION
     Route: 048
  5. BEMINAL WITH C [Concomitant]
     Indication: VITAMIN SUPPLEMENTATION
     Route: 042
  6. OMEPRAZOLE [Concomitant]
     Indication: GASTROOESOPHAGEAL REFLUX DISEASE
     Route: 048
  7. CALCIUM CARBONATE [Concomitant]
     Indication: DRUG THERAPY
     Route: 048
  8. CALCIUM CARBONATE [Concomitant]
     Route: 048
     Dates: start: 20070808, end: 20070813
  9. DUOVENT [Concomitant]
     Indication: CHRONIC OBSTRUCTIVE PULMONARY DISEASE
     Route: 055

REACTIONS (1)
  - PNEUMONIA [None]
